FAERS Safety Report 6997501-9 (Version None)
Quarter: 2010Q3

REPORT INFORMATION
  Report Type: 
  Country: None (occurrence: None)
  Receive Date: 20100918
  Receipt Date: 20091013
  Transmission Date: 20110219
  Serious: No
  Sender: FDA-Public Use
  Company Number: US-WYE-H11637309

PATIENT
  Sex: Male

DRUGS (1)
  1. TORISEL [Suspect]

REACTIONS (1)
  - NONSPECIFIC REACTION [None]
